FAERS Safety Report 24749191 (Version 1)
Quarter: 2024Q4

REPORT INFORMATION
  Report Type: Report from Study
  Country: HU (occurrence: HU)
  Receive Date: 20241218
  Receipt Date: 20241218
  Transmission Date: 20250115
  Serious: Yes (Hospitalization)
  Sender: BIOVITRUM
  Company Number: HU-AstraZeneca-CH-00764992A

PATIENT
  Age: 6 Month
  Sex: Male

DRUGS (1)
  1. PALIVIZUMAB [Suspect]
     Active Substance: PALIVIZUMAB
     Indication: Respiratory syncytial virus infection
     Route: 030
     Dates: start: 20241022

REACTIONS (1)
  - Drowning [Recovered/Resolved]

NARRATIVE: CASE EVENT DATE: 20241207
